FAERS Safety Report 9709248 (Version 2)
Quarter: 2013Q4

REPORT INFORMATION
  Report Type: Spontaneous
  Country: US (occurrence: US)
  Receive Date: 20131125
  Receipt Date: 20131125
  Transmission Date: 20140711
  Serious: Yes (Disabling, Other)
  Sender: FDA-Public Use
  Company Number: US-THROMBOGENICS NV-JET-2013-272

PATIENT
  Age: 43 Year
  Sex: Female

DRUGS (1)
  1. JETREA [Suspect]
     Indication: VITREOUS ADHESIONS
     Dosage: 0.125 MG, ONE TIME DOSE
     Route: 031
     Dates: start: 20130621, end: 20130621

REACTIONS (5)
  - Retinal detachment [Recovered/Resolved]
  - Macular hole [Recovered/Resolved]
  - Retinal tear [Not Recovered/Not Resolved]
  - Macular degeneration [Recovered/Resolved]
  - Visual acuity tests abnormal [Not Recovered/Not Resolved]
